FAERS Safety Report 4312874-3 (Version None)
Quarter: 2004Q1

REPORT INFORMATION
  Report Type: 
  Country: None (occurrence: None)
  Receive Date: 20040304
  Receipt Date: 20040224
  Transmission Date: 20041129
  Serious: Yes (Other)
  Sender: FDA-Public Use
  Company Number: TCI2004A00733

PATIENT
  Age: 66 Year
  Sex: Male

DRUGS (5)
  1. ACTOS [Suspect]
     Indication: DIABETES MELLITUS NON-INSULIN-DEPENDENT
     Dosage: 15 MG (15 MG, 1 IN 1 D) PER ORAL
     Route: 048
     Dates: start: 20010908, end: 20020220
  2. BUFFERIN [Concomitant]
  3. AMLODIPINE BESYLATE [Concomitant]
  4. ENALAPRIL MALEATE [Concomitant]
  5. DIFENIDOL HYDROCHLORIDE [Concomitant]

REACTIONS (3)
  - ANGINA PECTORIS [None]
  - CHEST PAIN [None]
  - TREATMENT NONCOMPLIANCE [None]
